FAERS Safety Report 5615045-3 (Version None)
Quarter: 2008Q1

REPORT INFORMATION
  Report Type: 
  Country: None (occurrence: None)
  Receive Date: 20080201
  Receipt Date: 20080122
  Transmission Date: 20080703
  Serious: Yes (Other)
  Sender: FDA-Public Use
  Company Number: 2008BI001633

PATIENT
  Age: 44 Year
  Sex: Female
  Weight: 56.6996 kg

DRUGS (2)
  1. AVONEX [Suspect]
     Indication: MULTIPLE SCLEROSIS
     Dosage: 30 UG; QW; IM
     Route: 030
     Dates: start: 19960101
  2. SYNTHROID [Concomitant]

REACTIONS (4)
  - BLOOD TEST ABNORMAL [None]
  - BREAST CANCER FEMALE [None]
  - HYSTERECTOMY [None]
  - INJECTION SITE MASS [None]
